FAERS Safety Report 11205284 (Version 1)
Quarter: 2015Q2

REPORT INFORMATION
  Report Type: Spontaneous
  Country: FR (occurrence: FR)
  Receive Date: 20150622
  Receipt Date: 20150622
  Transmission Date: 20150821
  Serious: Yes (Death)
  Sender: FDA-Public Use
  Company Number: FR-ACTAVIS-2015-12272

PATIENT
  Age: 79 Year
  Sex: Female

DRUGS (9)
  1. AUGMENTIN [Suspect]
     Active Substance: AMOXICILLIN\CLAVULANATE POTASSIUM
     Indication: DERMO-HYPODERMITIS
     Dosage: 3 G, DAILY
     Route: 065
     Dates: start: 20150320, end: 20150324
  2. CORDARONE [Suspect]
     Active Substance: AMIODARONE HYDROCHLORIDE
     Indication: PRODUCT USED FOR UNKNOWN INDICATION
     Dosage: 1 DF, DAILY
     Route: 048
     Dates: end: 20150410
  3. AMOXICILLINE PANPHARMA [Suspect]
     Active Substance: AMOXICILLIN
     Indication: DERMO-HYPODERMITIS
     Dosage: 5 G, DAILY
     Route: 042
     Dates: start: 20150404, end: 20150410
  4. TRAMADOL ACTAVIS L.P. [Suspect]
     Active Substance: TRAMADOL HYDROCHLORIDE
     Indication: PRODUCT USED FOR UNKNOWN INDICATION
     Dosage: UNK
     Route: 048
     Dates: start: 20150326, end: 20150403
  5. PREVISCAN (FLUINDIONE) [Suspect]
     Active Substance: FLUINDIONE
     Indication: ATRIAL FIBRILLATION
     Dosage: 0.5 DF, DAILY
     Route: 048
     Dates: start: 20150330, end: 20150403
  6. TAZOCILLINE [Suspect]
     Active Substance: PIPERACILLIN SODIUM\TAZOBACTAM SODIUM
     Indication: DERMO-HYPODERMITIS
     Dosage: UNK
     Route: 065
     Dates: start: 20150325, end: 20150403
  7. PREVISCAN (FLUINDIONE) [Suspect]
     Active Substance: FLUINDIONE
     Dosage: 0.5 DF, DAILY
     Route: 048
     Dates: end: 20150325
  8. CONTRAMAL [Suspect]
     Active Substance: TRAMADOL HYDROCHLORIDE
     Indication: PRODUCT USED FOR UNKNOWN INDICATION
     Dosage: UNK
     Route: 042
     Dates: start: 20150405, end: 20150410
  9. AMOXICILLIN /00249602/ [Suspect]
     Active Substance: AMOXICILLIN
     Indication: DERMO-HYPODERMITIS
     Dosage: 3 G, DAILY
     Route: 065
     Dates: start: 20150320, end: 20150324

REACTIONS (2)
  - Accidental overdose [Fatal]
  - Muscle haemorrhage [Fatal]

NARRATIVE: CASE EVENT DATE: 20150403
